FAERS Safety Report 6993628-6 (Version None)
Quarter: 2010Q3

REPORT INFORMATION
  Report Type: 
  Country: None (occurrence: None)
  Receive Date: 20100917
  Receipt Date: 20070822
  Transmission Date: 20110219
  Serious: Yes (Other)
  Sender: FDA-Public Use
  Company Number: US-ASTRAZENECA-2006UW12102

PATIENT
  Age: 13841 Day
  Sex: Female

DRUGS (11)
  1. SEROQUEL [Suspect]
     Indication: SLEEP DISORDER
     Route: 048
     Dates: start: 19990101, end: 20051001
  2. SEROQUEL [Suspect]
     Dosage: 25 MG TO 100 MG
     Route: 048
     Dates: start: 20021126
  3. DEPAKOTE [Concomitant]
     Dates: start: 20021126
  4. PAXIL [Concomitant]
     Dosage: 20 MG TO 30 MG, DAILY
     Dates: start: 20021126
  5. KLONOPIN [Concomitant]
     Indication: ANXIETY
     Route: 048
     Dates: start: 20030404
  6. XANAX [Concomitant]
     Dosage: 0.5 TO 3, PER DAY
     Dates: start: 20021126
  7. AMBIEN [Concomitant]
     Dosage: 10 MG, AT NIGHT, AS PER REQUIRED
     Dates: start: 20051219
  8. ZOLOFT [Concomitant]
     Dosage: 50
     Dates: start: 20050404
  9. CATAFLAM [Concomitant]
     Dates: start: 20050404
  10. VICODIN [Concomitant]
     Indication: PAIN
     Dosage: EVERY FOUR TO SIX HOURS, AS PER REQUIRED
     Dates: start: 20050404
  11. GLUCOPHAGE [Concomitant]
     Dosage: 250 MG TO 1000 MG, DAILY
     Dates: start: 20050620

REACTIONS (3)
  - DIABETES MELLITUS [None]
  - GLUCOSE TOLERANCE IMPAIRED [None]
  - TYPE 2 DIABETES MELLITUS [None]
